FAERS Safety Report 5954806-8 (Version None)
Quarter: 2008Q4

REPORT INFORMATION
  Report Type: 
  Country: None (occurrence: None)
  Receive Date: 20081031
  Receipt Date: 20080620
  Transmission Date: 20090506
  Serious: No
  Sender: FDA-Public Use
  Company Number: 2008PV035845

PATIENT
  Age: 50 Hour
  Sex: Female
  Weight: 81.6475 kg

DRUGS (7)
  1. SYMLIN [Suspect]
     Indication: TYPE 2 DIABETES MELLITUS
     Dosage: 240 MCG; TID; SC
     Route: 058
     Dates: start: 20080401
  2. SYMLIN [Suspect]
     Indication: TYPE 2 DIABETES MELLITUS
     Dosage: 270 MCG; TID; SC, 120 MCG; TID; SC
     Route: 058
     Dates: start: 20050101, end: 20050101
  3. SYMLIN [Suspect]
     Indication: TYPE 2 DIABETES MELLITUS
     Dosage: 270 MCG; TID; SC, 120 MCG; TID; SC
     Route: 058
     Dates: start: 20050101, end: 20050101
  4. SYMLIN [Suspect]
     Indication: TYPE 2 DIABETES MELLITUS
     Dosage: 270 MCG; TID; SC, 120 MCG; TID; SC
     Route: 058
     Dates: start: 20050101
  5. GLUCOPHAGE [Concomitant]
  6. PRANDIN [Concomitant]
  7. LANTUS [Concomitant]

REACTIONS (2)
  - BLOOD GLUCOSE DECREASED [None]
  - HYPERHIDROSIS [None]
